FAERS Safety Report 21385127 (Version 3)
Quarter: 2023Q1

REPORT INFORMATION
  Report Type: Report from Study
  Country: MX (occurrence: MX)
  Receive Date: 20220928
  Receipt Date: 20230324
  Transmission Date: 20230417
  Serious: Yes (Other)
  Sender: FDA-Public Use
  Company Number: MX-NOVARTISPH-NVSC2022MX147794

PATIENT
  Sex: Female

DRUGS (1)
  1. TASIGNA [Suspect]
     Active Substance: NILOTINIB
     Indication: Chronic myeloid leukaemia
     Dosage: UNK
     Route: 048

REACTIONS (21)
  - Syncope [Unknown]
  - Decreased immune responsiveness [Unknown]
  - Stress [Unknown]
  - Discomfort [Unknown]
  - Negative thoughts [Unknown]
  - Feeling abnormal [Unknown]
  - Reflux gastritis [Unknown]
  - Obstructive airways disorder [Unknown]
  - Infection [Unknown]
  - Crying [Unknown]
  - Herpes virus infection [Unknown]
  - Depression [Unknown]
  - Depressed mood [Unknown]
  - Pruritus [Unknown]
  - Chest pain [Unknown]
  - Blood glucose increased [Unknown]
  - Urinary tract infection [Unknown]
  - Diarrhoea [Unknown]
  - Nausea [Unknown]
  - Weight decreased [Unknown]
  - Body temperature increased [Unknown]
